FAERS Safety Report 18789037 (Version 1)
Quarter: 2021Q1

REPORT INFORMATION
  Report Type: Spontaneous
  Country: US (occurrence: US)
  Receive Date: 20210126
  Receipt Date: 20210126
  Transmission Date: 20210419
  Serious: No
  Sender: FDA-Public Use
  Company Number: US-ELI_LILLY_AND_COMPANY-US202012013541

PATIENT
  Sex: Female

DRUGS (1)
  1. BAMLANIVIMAB 700MG [Suspect]
     Active Substance: BAMLANIVIMAB
     Indication: COVID-19
     Dosage: UNK, SINGLE
     Route: 065
     Dates: start: 20201226, end: 20201226

REACTIONS (6)
  - Sleep disorder [Unknown]
  - Condition aggravated [Unknown]
  - Decreased appetite [Unknown]
  - Nasal congestion [Unknown]
  - Ageusia [Unknown]
  - Fatigue [Unknown]
